FAERS Safety Report 8964337 (Version 1)
Quarter: 2012Q4

REPORT INFORMATION
  Report Type: 
  Country: US (occurrence: US)
  Receive Date: 20121214
  Receipt Date: 20121214
  Transmission Date: 20130627
  Serious: No
  Sender: FDA-Public Use
  Company Number: US-PFIZER INC-2004057527

PATIENT
  Sex: Female

DRUGS (3)
  1. MOTRIN IB [Suspect]
     Indication: BACK PAIN
     Dosage: 200 mg, 3 in 1 day
     Route: 048
     Dates: start: 200306, end: 20040331
  2. DRUG, UNSPECIFIED [Suspect]
     Indication: TANNING
     Dosage: UNK
     Route: 061
     Dates: start: 1999
  3. DRUG, UNSPECIFIED [Concomitant]
     Dosage: UNK

REACTIONS (2)
  - Blister [Unknown]
  - Drug interaction [Unknown]
